FAERS Safety Report 10078277 (Version 1)
Quarter: 2014Q2

REPORT INFORMATION
  Report Type: Spontaneous
  Country: US (occurrence: US)
  Receive Date: 20140415
  Receipt Date: 20140415
  Transmission Date: 20141212
  Serious: Yes (Other)
  Sender: FDA-Public Use
  Company Number: US-BRISTOL-MYERS SQUIBB COMPANY-20600805

PATIENT
  Sex: Female

DRUGS (2)
  1. WARFARIN [Suspect]
  2. XARELTO [Suspect]

REACTIONS (3)
  - Hip fracture [Unknown]
  - Inguinal hernia [Unknown]
  - Haemorrhage [Unknown]
